FAERS Safety Report 4401690-X (Version None)
Quarter: 2004Q3

REPORT INFORMATION
  Report Type: 
  Country: None (occurrence: None)
  Receive Date: 20040719
  Receipt Date: 20040705
  Transmission Date: 20050211
  Serious: Yes (Other)
  Sender: FDA-Public Use
  Company Number: NL-GLAXOSMITHKLINE-B0338872A

PATIENT
  Age: 86 Year
  Sex: Female

DRUGS (8)
  1. AUGMENTIN '125' [Suspect]
     Dosage: 1U PER DAY
  2. RASTINON [Concomitant]
     Dosage: 1TAB THREE TIMES PER DAY
     Route: 048
  3. SINEMET [Concomitant]
     Dosage: 1TAB THREE TIMES PER DAY
     Route: 048
  4. LASIX [Concomitant]
     Dosage: 1TAB PER DAY
     Route: 048
  5. PROMOCARD [Concomitant]
     Dosage: 1TAB PER DAY
     Route: 048
  6. LANOXIN [Concomitant]
     Dosage: 1TAB PER DAY
     Route: 048
  7. METFORMIN HCL [Concomitant]
     Dosage: 1TAB TWICE PER DAY
     Route: 048
  8. ACETYLSALICYLICUM [Concomitant]
     Dosage: 1TAB PER DAY
     Route: 048

REACTIONS (1)
  - HEPATOCELLULAR DAMAGE [None]
